FAERS Safety Report 6519312-0 (Version None)
Quarter: 2009Q4

REPORT INFORMATION
  Report Type: 
  Country: None (occurrence: None)
  Receive Date: 20091224
  Receipt Date: 20091224
  Transmission Date: 20100525
  Serious: Yes (Hospitalization)
  Sender: FDA-Public Use
  Company Number: None

PATIENT
  Sex: Female
  Weight: 69.3 kg

DRUGS (20)
  1. CYCLOPHOSPHAMIDE [Suspect]
     Dosage: 1000 MG
  2. TAXOTERE [Suspect]
     Dosage: 125 MG
  3. APREPITANT [Concomitant]
  4. ASPIRIN [Concomitant]
  5. CALCIPOTRIENE [Concomitant]
  6. ASPART [Concomitant]
  7. CALCITONIN [Concomitant]
  8. CARVEDILOL [Concomitant]
  9. CITALOPRAM HYDROBROMIDE [Concomitant]
  10. CLOBETASOL PROPIONATE [Concomitant]
  11. CYANOCOBALAMIN [Concomitant]
  12. GLARGINE [Concomitant]
  13. HYDROCODONE 5/ACETAMINOPHEN [Concomitant]
  14. HYDROCORTISONE [Concomitant]
  15. LISINOPRIL [Concomitant]
  16. METOCLOPRAMIDE [Concomitant]
  17. PANTOPRAZOLE [Concomitant]
  18. PEGFILGRASTIM [Concomitant]
  19. PROCHLORPERAZINE [Concomitant]
  20. SIMVASTATIN [Concomitant]

REACTIONS (18)
  - ASTHENIA [None]
  - ATRIAL FIBRILLATION [None]
  - BRAIN NATRIURETIC PEPTIDE INCREASED [None]
  - DIZZINESS [None]
  - DYSPEPSIA [None]
  - DYSPNOEA [None]
  - GLUCOSE URINE PRESENT [None]
  - HEART RATE INCREASED [None]
  - HYPERGLYCAEMIA [None]
  - HYPERHIDROSIS [None]
  - NAUSEA [None]
  - PALLOR [None]
  - PALPITATIONS [None]
  - PROTEIN URINE PRESENT [None]
  - UNRESPONSIVE TO STIMULI [None]
  - URINE KETONE BODY PRESENT [None]
  - VOMITING [None]
  - WHITE BLOOD CELLS URINE POSITIVE [None]
